FAERS Safety Report 10470618 (Version 1)
Quarter: 2014Q3

REPORT INFORMATION
  Report Type: Spontaneous
  Country: CH (occurrence: CH)
  Receive Date: 20140923
  Receipt Date: 20140923
  Transmission Date: 20150326
  Serious: Yes (Hospitalization)
  Sender: FDA-Public Use
  Company Number: CH-009507513-1409CHE009509

PATIENT
  Age: 80 Year
  Sex: Male

DRUGS (1)
  1. NANDROLONE DECANOATE. [Suspect]
     Active Substance: NANDROLONE DECANOATE
     Dosage: 200MG IN 12 DAYS, FREQUENCY: 4 DOSE UNITS IN 12 DAYS; STRENGTH: 50MG/ML 4 DOSE UNITS
     Route: 030
     Dates: start: 201404, end: 201404

REACTIONS (4)
  - Delirium [Recovering/Resolving]
  - Pneumonia [Recovering/Resolving]
  - Hypercalcaemia [Recovering/Resolving]
  - Dysarthria [Recovering/Resolving]

NARRATIVE: CASE EVENT DATE: 201404
